FAERS Safety Report 8977059 (Version 1)
Quarter: 2012Q4

REPORT INFORMATION
  Report Type: 
  Country: US (occurrence: US)
  Receive Date: 20121220
  Receipt Date: 20121220
  Transmission Date: 20130627
  Serious: No
  Sender: FDA-Public Use
  Company Number: US-PFIZER INC-2012321658

PATIENT
  Age: 9 Year
  Sex: Male
  Weight: 36.28 kg

DRUGS (2)
  1. CHILDRENS ADVIL [Suspect]
     Indication: FEVER
     Dosage: (taking 2 teaspoonfuls), twice a day
     Route: 048
     Dates: start: 20121216
  2. TYLENOL [Concomitant]
     Indication: FEVER
     Dosage: 300 mg, every 4 hrs
     Dates: start: 20121215

REACTIONS (1)
  - Urticaria [Not Recovered/Not Resolved]
